FAERS Safety Report 5714459-0 (Version None)
Quarter: 2008Q2

REPORT INFORMATION
  Report Type: 
  Country: None (occurrence: None)
  Receive Date: 20080423
  Receipt Date: 20080408
  Transmission Date: 20081010
  Serious: Yes (Hospitalization)
  Sender: FDA-Public Use
  Company Number: GB-AMGEN-UK274291

PATIENT
  Age: 57 Year
  Sex: Female

DRUGS (3)
  1. NEUPOGEN [Suspect]
     Route: 065
  2. FLUDARABINE PHOSPHATE [Suspect]
     Route: 065
  3. CYTARABINE [Suspect]
     Route: 065

REACTIONS (2)
  - NEUTROPENIA [None]
  - SINUSITIS FUNGAL [None]
